FAERS Safety Report 9702339 (Version 1)
Quarter: 2013Q4

REPORT INFORMATION
  Report Type: Spontaneous
  Country: US (occurrence: None)
  Receive Date: 20131119
  Receipt Date: 20131119
  Transmission Date: 20140711
  Serious: Yes (Life-Threatening, Hospitalization)
  Sender: FDA-Public Use
  Company Number: 2013P1020843

PATIENT
  Age: 16 Year
  Sex: Female

DRUGS (12)
  1. CLONIDINE [Suspect]
     Indication: HYPERTENSION
     Route: 048
  2. LISINOPRIL [Suspect]
     Indication: HYPERTENSION
     Route: 048
  3. FUROSEMIDE [Suspect]
     Indication: HYPERTENSION
     Route: 042
  4. AMLODIPINE [Suspect]
     Indication: HYPERTENSION
     Route: 048
  5. ATENOLOL [Suspect]
     Indication: HYPERTENSION
     Route: 048
  6. METOPROLOL [Suspect]
     Indication: HYPERTENSION
  7. EPOETIN ALFA [Concomitant]
  8. CALCITRIOL [Concomitant]
  9. SODIUM BICARBONATE [Concomitant]
  10. CALCIUM ACETATE [Concomitant]
  11. NICARDIPINE [Concomitant]
  12. AMITRIPTYLINE [Concomitant]

REACTIONS (15)
  - Headache [None]
  - Mental status changes [None]
  - Presyncope [None]
  - Vertigo [None]
  - Fall [None]
  - Blood pressure decreased [None]
  - Dizziness [None]
  - Nausea [None]
  - Visual impairment [None]
  - Phonophobia [None]
  - Migraine [None]
  - Hypoaesthesia [None]
  - Hypoaesthesia [None]
  - Hypoaesthesia [None]
  - Moyamoya disease [None]
